FAERS Safety Report 5352774-3 (Version None)
Quarter: 2007Q2

REPORT INFORMATION
  Report Type: 
  Country: None (occurrence: None)
  Receive Date: 20070518
  Receipt Date: 20070320
  Transmission Date: 20071010
  Serious: No
  Sender: FDA-Public Use
  Company Number: TPA2007A00655

PATIENT
  Age: 34 Year
  Sex: Female
  Weight: 135.6255 kg

DRUGS (17)
  1. ROZEREM [Suspect]
     Indication: ANXIETY
     Dosage: 8 MG, QHS, PER ORAL
     Route: 048
     Dates: start: 20070314, end: 20070315
  2. ROZEREM [Suspect]
     Indication: SLEEP APNOEA SYNDROME
     Dosage: 8 MG, QHS, PER ORAL
     Route: 048
     Dates: start: 20070314, end: 20070315
  3. ADVAIR INHALER (FLUTICASONE PROPIONATE, SALMETEROL XINAFOATE) [Concomitant]
  4. COMBIVENT INHALER (IPRATROPIUM BROMIDE, SALBUTAMOL SULFATE) [Concomitant]
  5. SINGULAIR [Concomitant]
  6. ZYRTEC [Concomitant]
  7. ASPIRIN [Concomitant]
  8. MULTIVITAMIN [Concomitant]
  9. NEXIUM [Concomitant]
  10. AXERT [Concomitant]
  11. TOPAMAX [Concomitant]
  12. PROVIGIL [Concomitant]
  13. CYMBALTA [Concomitant]
  14. EFFEXOR XR [Concomitant]
  15. KLONOPIN [Concomitant]
  16. LAMICTAL [Concomitant]
  17. VISTARIL (HYDROXYZINE EMBONATE) [Concomitant]

REACTIONS (1)
  - HYPERSOMNIA [None]
